FAERS Safety Report 6054546-3 (Version None)
Quarter: 2009Q1

REPORT INFORMATION
  Report Type: 
  Country: None (occurrence: None)
  Receive Date: 20090127
  Receipt Date: 20090121
  Transmission Date: 20090719
  Serious: Yes (Other)
  Sender: FDA-Public Use
  Company Number: PHHY2009BR01456

PATIENT
  Age: 66 Year
  Sex: Female

DRUGS (1)
  1. RASILEZ [Suspect]
     Indication: BLOOD PRESSURE MANAGEMENT
     Dosage: 1 TABLET DAILY
     Route: 048

REACTIONS (5)
  - ASTHENIA [None]
  - MALAISE [None]
  - PRURITUS [None]
  - SKIN BURNING SENSATION [None]
  - SOMNOLENCE [None]
